FAERS Safety Report 8371366-5 (Version None)
Quarter: 2012Q2

REPORT INFORMATION
  Report Type: 
  Country: None (occurrence: None)
  Receive Date: 20120518
  Receipt Date: 20120515
  Transmission Date: 20120825
  Serious: Yes (Other)
  Sender: FDA-Public Use
  Company Number: PHEH2011US05493

PATIENT
  Sex: Female
  Weight: 57.596 kg

DRUGS (7)
  1. CELEXA [Concomitant]
     Dosage: 120 MG, QD
  2. NEURONTIN [Concomitant]
     Dosage: 1600 MG, TID
  3. VALIUM [Concomitant]
     Dosage: 10 MG, PRN
  4. CLONIDINE [Suspect]
     Indication: PANIC ATTACK
     Dosage: 0.1 MG, TID
  5. PROVIGIL [Concomitant]
     Dosage: 200 MG, QD
  6. GILENYA [Suspect]
     Indication: MULTIPLE SCLEROSIS
     Dosage: 0.5 MG, QD
     Route: 048
     Dates: start: 20110914
  7. TRAZODONE [Concomitant]
     Dosage: 100 MG, QD

REACTIONS (7)
  - CONVULSION [None]
  - VISION BLURRED [None]
  - FEELING ABNORMAL [None]
  - DIZZINESS [None]
  - HEADACHE [None]
  - VERTIGO [None]
  - ASTHENIA [None]
